FAERS Safety Report 6769100-5 (Version None)
Quarter: 2010Q2

REPORT INFORMATION
  Report Type: 
  Country: None (occurrence: None)
  Receive Date: 20100604
  Receipt Date: 20100531
  Transmission Date: 20101027
  Serious: Yes (Life-Threatening, Hospitalization, Other)
  Sender: FDA-Public Use
  Company Number: 2010SP014467

PATIENT
  Age: 71 Year
  Sex: Female
  Weight: 61 kg

DRUGS (1)
  1. TEMODAL [Suspect]
     Indication: GLIOBLASTOMA
     Dosage: 75 MG/M2;
     Dates: start: 20100204, end: 20100301

REACTIONS (4)
  - COMA [None]
  - FEBRILE NEUTROPENIA [None]
  - PANCYTOPENIA [None]
  - SEPSIS [None]
